FAERS Safety Report 7250634-4 (Version None)
Quarter: 2011Q1

REPORT INFORMATION
  Report Type: 
  Country: None (occurrence: None)
  Receive Date: 20110128
  Receipt Date: 20110119
  Transmission Date: 20110831
  Serious: Yes (Other)
  Sender: FDA-Public Use
  Company Number: JP-JNJFOC-20110106250

PATIENT
  Age: 36 Year
  Sex: Female

DRUGS (3)
  1. CRAVIT [Suspect]
     Indication: ENTERITIS INFECTIOUS
     Route: 048
  2. GASMOTIN [Concomitant]
     Indication: PRODUCT USED FOR UNKNOWN INDICATION
     Route: 065
  3. BIO-THREE [Concomitant]
     Indication: PRODUCT USED FOR UNKNOWN INDICATION
     Route: 065

REACTIONS (4)
  - FACE OEDEMA [None]
  - ANAPHYLACTIC REACTION [None]
  - CHILLS [None]
  - PRURITUS GENERALISED [None]
